FAERS Safety Report 10110540 (Version 2)
Quarter: 2014Q2

REPORT INFORMATION
  Report Type: Spontaneous
  Country: GB (occurrence: None)
  Receive Date: 20140423
  Receipt Date: 20140429
  Transmission Date: 20141212
  Serious: Yes (Hospitalization, Other)
  Sender: FDA-Public Use
  Company Number: AUR-APL-2014-04720

PATIENT
  Age: 67 Year
  Sex: Male

DRUGS (16)
  1. FUROSEMIDE [Suspect]
     Indication: EJECTION FRACTION ABNORMAL
     Dosage: (120 MG,1 D)
     Route: 048
  2. RAMIPRIL [Suspect]
     Indication: EJECTION FRACTION ABNORMAL
     Dosage: 10 MG (5 MG, 2 IN 1 D)
     Route: 048
  3. EPLERENONE [Suspect]
     Indication: EJECTION FRACTION ABNORMAL
     Dosage: 25 MG, 1 IN 1 D
     Route: 048
  4. ORAMORPH [Suspect]
     Indication: BACK PAIN
     Dosage: 40 MG (10 MG, 4 IN 1 D)
  5. ZOMORPH [Suspect]
     Indication: BACK PAIN
     Dosage: (30 MG,1 D)
     Route: 048
  6. ALLOPURINOL [Concomitant]
  7. AMITRIPTYLINE [Concomitant]
  8. ATORVASTATIN [Concomitant]
  9. BISOPROLOL [Concomitant]
  10. DIGOXIN [Concomitant]
  11. METFORMIN [Concomitant]
  12. NOVOMIX [Concomitant]
  13. RANITIDINE [Concomitant]
  14. SAXAGLIPTIN [Concomitant]
  15. VICTOZA (LIRAGLUTIDE) [Concomitant]
  16. WARFARIN [Concomitant]

REACTIONS (10)
  - Renal failure acute [None]
  - Toxicity to various agents [None]
  - Lethargy [None]
  - Vomiting [None]
  - Escherichia sepsis [None]
  - Blood potassium increased [None]
  - Blood sodium decreased [None]
  - International normalised ratio increased [None]
  - Fluid intake reduced [None]
  - Dehydration [None]
